FAERS Safety Report 23628457 (Version 3)
Quarter: 2024Q4

REPORT INFORMATION
  Report Type: Spontaneous
  Country: US (occurrence: US)
  Receive Date: 20240313
  Receipt Date: 20241216
  Transmission Date: 20250115
  Serious: No
  Sender: SANOFI AVENTIS
  Company Number: US-SA-SAC20240307001276

PATIENT
  Age: 33 Year
  Sex: Male
  Weight: 72.57 kg

DRUGS (9)
  1. DUPIXENT [Suspect]
     Active Substance: DUPILUMAB
     Indication: Dermatitis atopic
     Dosage: 300 MG, QOW
     Route: 058
     Dates: start: 20211112, end: 20240521
  2. LATANOPROST [Suspect]
     Active Substance: LATANOPROST
     Dosage: UNK
  3. MINERALS\VITAMINS [Suspect]
     Active Substance: MINERALS\VITAMINS
     Dosage: UNK
  4. PSEUDOEPHEDRINE HYDROCHLORIDE [Concomitant]
     Active Substance: PSEUDOEPHEDRINE HYDROCHLORIDE
  5. TRIAMCINOLONE ACETONIDE [Concomitant]
     Active Substance: TRIAMCINOLONE ACETONIDE
     Dosage: UNK
  6. PFIZER-BIONTECH COVID-19 VACCINE [Concomitant]
     Active Substance: TOZINAMERAN
  7. VITAMIN C [Concomitant]
     Active Substance: ASCORBIC ACID
     Dosage: UNK
  8. Cetaphil [Concomitant]
     Dosage: UNK
  9. BETAMETHASONE DIPROPIONATE [Concomitant]
     Active Substance: BETAMETHASONE DIPROPIONATE
     Dosage: UNK

REACTIONS (14)
  - Feeling cold [Not Recovered/Not Resolved]
  - Dry skin [Not Recovered/Not Resolved]
  - Dermatitis contact [Recovered/Resolved]
  - Retinal disorder [Recovered/Resolved]
  - Skin exfoliation [Not Recovered/Not Resolved]
  - Rash [Recovered/Resolved]
  - Inappropriate schedule of product administration [Unknown]
  - Maculopathy [Unknown]
  - Altered visual depth perception [Unknown]
  - Amblyopia [Unknown]
  - Dizziness [Unknown]
  - Lichenification [Unknown]
  - Skin discolouration [Unknown]
  - Dermatitis atopic [Unknown]

NARRATIVE: CASE EVENT DATE: 20240101
